FAERS Safety Report 17656077 (Version 1)
Quarter: 2020Q2

REPORT INFORMATION
  Report Type: Spontaneous
  Country: US (occurrence: US)
  Receive Date: 20200409
  Receipt Date: 20200409
  Transmission Date: 20200713
  Serious: Yes (Hospitalization)
  Sender: FDA-Public Use
  Company Number: None

PATIENT
  Age: 70 Year
  Sex: Male
  Weight: 95 kg

DRUGS (1)
  1. CYCLOBENZAPRINE (CYCLOBENZAPRINE HCL 10MG TAB) [Suspect]
     Active Substance: CYCLOBENZAPRINE
     Dates: start: 20200128, end: 20200130

REACTIONS (4)
  - Acute kidney injury [None]
  - Angioedema [None]
  - Urticaria [None]
  - Mental status changes [None]

NARRATIVE: CASE EVENT DATE: 20200128
